APPROVED DRUG PRODUCT: CORPHEDRA
Active Ingredient: EPHEDRINE SULFATE
Strength: 50MG/ML (50MG/ML)
Dosage Form/Route: SOLUTION;INTRAVENOUS
Application: N208943 | Product #001 | TE Code: AP
Applicant: PH HEALTH LTD
Approved: Jan 27, 2017 | RLD: No | RS: No | Type: RX